FAERS Safety Report 5718050-1 (Version None)
Quarter: 2008Q2

REPORT INFORMATION
  Report Type: 
  Country: None (occurrence: None)
  Receive Date: 20080425
  Receipt Date: 20080424
  Transmission Date: 20081010
  Serious: Yes (Death, Hospitalization)
  Sender: FDA-Public Use
  Company Number: BR-ASTRAZENECA-2008UW08386

PATIENT
  Age: 94 Year
  Sex: Female
  Weight: 48 kg

DRUGS (4)
  1. ARIMIDEX [Suspect]
     Indication: BREAST CANCER
     Route: 048
     Dates: start: 20050101, end: 20080301
  2. TAMOXIFEN [Suspect]
     Indication: BREAST CANCER
     Route: 048
     Dates: start: 20050101, end: 20050101
  3. ALOIS [Concomitant]
     Indication: DEMENTIA ALZHEIMER'S TYPE
     Route: 048
     Dates: start: 20050101
  4. REMERON [Concomitant]
     Indication: DEMENTIA ALZHEIMER'S TYPE
     Route: 048
     Dates: start: 20050101

REACTIONS (7)
  - DECUBITUS ULCER [None]
  - DISEASE PROGRESSION [None]
  - FALL [None]
  - HUMERUS FRACTURE [None]
  - PNEUMONIA [None]
  - SEPSIS [None]
  - WRIST FRACTURE [None]
